FAERS Safety Report 13327002 (Version 1)
Quarter: 2017Q1

REPORT INFORMATION
  Report Type: Other
  Country: NL (occurrence: NL)
  Receive Date: 20170313
  Receipt Date: 20170313
  Transmission Date: 20170428
  Serious: Yes (Hospitalization)
  Sender: FDA-Public Use
  Company Number: NL-ORCHID HEALTHCARE-1064165

PATIENT
  Age: 61 Year
  Sex: Female
  Weight: 80 kg

DRUGS (2)
  1. GENTAMICIN. [Concomitant]
     Active Substance: GENTAMICIN
     Route: 065
  2. CEFUROXIME AXETIL. [Suspect]
     Active Substance: CEFUROXIME AXETIL
     Indication: URINARY TRACT INFECTION
     Route: 042

REACTIONS (9)
  - Myoclonus [Recovered/Resolved]
  - C-reactive protein increased [Recovered/Resolved]
  - Nystagmus [Recovered/Resolved]
  - Blood albumin increased [Recovered/Resolved]
  - White blood cell count increased [Recovered/Resolved]
  - Tremor [Recovered/Resolved]
  - Blood creatine increased [Recovered/Resolved]
  - Neurotoxicity [Recovered/Resolved]
  - Pyonephrosis [Recovered/Resolved]
